FAERS Safety Report 4670925-0 (Version None)
Quarter: 2005Q2

REPORT INFORMATION
  Report Type: 
  Country: None (occurrence: None)
  Receive Date: 20050523
  Receipt Date: 20050506
  Transmission Date: 20051028
  Serious: Yes (Hospitalization)
  Sender: FDA-Public Use
  Company Number: 2005BI008280

PATIENT
  Age: 28 Year
  Sex: Male

DRUGS (6)
  1. NATALIZUMAB (NATALIZUMAB) [Suspect]
     Indication: CROHN'S DISEASE
     Dosage: 300 MG;QWM; IV
     Route: 042
     Dates: start: 20050127, end: 20050224
  2. PREDNISONE [Concomitant]
  3. MESALAMINE [Concomitant]
  4. OMEPRAZOLE [Concomitant]
  5. CALCIUM GLUCONATE [Concomitant]
  6. CORTICOSTEROIDS  FOR SYSTEMIC USE [Concomitant]

REACTIONS (6)
  - BLOOD PRESSURE INCREASED [None]
  - HAEMATURIA [None]
  - HEADACHE [None]
  - HERPES ZOSTER [None]
  - LEUKOCYTOSIS [None]
  - NAUSEA [None]
